FAERS Safety Report 9116113 (Version 1)
Quarter: 2013Q1

REPORT INFORMATION
  Report Type: Spontaneous
  Country: FR (occurrence: FR)
  Receive Date: 20130225
  Receipt Date: 20130225
  Transmission Date: 20140127
  Serious: Yes (Death, Congenital Anomaly)
  Sender: FDA-Public Use
  Company Number: FR-ELI_LILLY_AND_COMPANY-FR201302003506

PATIENT
  Age: 14 Week
  Sex: 0

DRUGS (1)
  1. CYMBALTA [Suspect]
     Indication: DEPRESSION
     Dosage: 1 DF, QD
     Route: 064

REACTIONS (3)
  - Foetal death [Fatal]
  - Limb reduction defect [Unknown]
  - Foetal exposure during pregnancy [Unknown]
